FAERS Safety Report 18512949 (Version 2)
Quarter: 2020Q4

REPORT INFORMATION
  Report Type: Spontaneous
  Country: US (occurrence: US)
  Receive Date: 20201117
  Receipt Date: 20201118
  Transmission Date: 20210114
  Serious: Yes (Death)
  Sender: FDA-Public Use
  Company Number: US-ABBVIE-20K-163-3651429-00

PATIENT
  Age: 57 Year
  Sex: Male

DRUGS (6)
  1. ALCOHOL. [Suspect]
     Active Substance: ALCOHOL
     Indication: PRODUCT USED FOR UNKNOWN INDICATION
     Route: 048
  2. GABAPENTIN. [Suspect]
     Active Substance: GABAPENTIN
     Indication: PRODUCT USED FOR UNKNOWN INDICATION
     Route: 048
  3. METAXALONE. [Suspect]
     Active Substance: METAXALONE
     Indication: PRODUCT USED FOR UNKNOWN INDICATION
     Route: 048
  4. DARUNAVIR [Suspect]
     Active Substance: DARUNAVIR
     Indication: PRODUCT USED FOR UNKNOWN INDICATION
     Route: 048
  5. RITONAVIR. [Suspect]
     Active Substance: RITONAVIR
     Indication: PRODUCT USED FOR UNKNOWN INDICATION
     Route: 048
  6. EMTRICITABINE/TENOFOVIR [Suspect]
     Active Substance: EMTRICITABINE\TENOFOVIR
     Indication: PRODUCT USED FOR UNKNOWN INDICATION
     Route: 048

REACTIONS (1)
  - Death [Fatal]
